FAERS Safety Report 9767946 (Version 2)
Quarter: 2014Q1

REPORT INFORMATION
  Report Type: Spontaneous
  Country: GR (occurrence: GR)
  Receive Date: 20131217
  Receipt Date: 20140220
  Transmission Date: 20141002
  Serious: Yes (Death, Hospitalization)
  Sender: FDA-Public Use
  Company Number: GR-GLAXOSMITHKLINE-B0953391A

PATIENT
  Age: 57 Year
  Sex: Male

DRUGS (11)
  1. ARZERRA [Suspect]
     Indication: CHRONIC LYMPHOCYTIC LEUKAEMIA
     Dosage: 2G PER DAY
     Route: 042
     Dates: start: 20131125
  2. TRANSAMINE [Concomitant]
     Route: 042
     Dates: start: 20131202, end: 20131203
  3. BACTRIMEL [Concomitant]
     Route: 048
     Dates: start: 20131202
  4. ZOVIRAX [Concomitant]
     Route: 048
     Dates: start: 20131203
  5. FILGRASTIM [Concomitant]
     Route: 058
     Dates: start: 20131202, end: 20131203
  6. PREZOLON [Concomitant]
     Route: 042
     Dates: start: 20131203
  7. BACTRIMEL [Concomitant]
     Route: 042
     Dates: start: 20131203
  8. VONCON [Concomitant]
     Dosage: 500MG TWICE PER DAY
     Route: 042
     Dates: start: 20131203
  9. BRIKLIN [Concomitant]
     Route: 042
     Dates: start: 20131203
  10. BEROVENT [Concomitant]
     Dates: start: 20131203
  11. PULMICORT [Concomitant]
     Dosage: 2MG THREE TIMES PER DAY
     Dates: start: 20131203

REACTIONS (3)
  - Respiratory tract infection [Fatal]
  - Septic shock [Fatal]
  - Pyrexia [Unknown]
